FAERS Safety Report 21342253 (Version 6)
Quarter: 2025Q2

REPORT INFORMATION
  Report Type: Report from Study
  Country: US (occurrence: US)
  Receive Date: 20220916
  Receipt Date: 20250417
  Transmission Date: 20250717
  Serious: Yes (Other)
  Sender: ROCHE
  Company Number: US-ROCHE-3178361

PATIENT
  Age: 78 Year
  Sex: Female

DRUGS (4)
  1. ACTEMRA [Suspect]
     Active Substance: TOCILIZUMAB
     Indication: Giant cell arteritis
     Route: 058
  2. ACTEMRA [Suspect]
     Active Substance: TOCILIZUMAB
     Route: 058
  3. ACTEMRA [Suspect]
     Active Substance: TOCILIZUMAB
     Route: 058
  4. ACTEMRA [Suspect]
     Active Substance: TOCILIZUMAB
     Route: 058

REACTIONS (15)
  - Memory impairment [Unknown]
  - Cerebrovascular accident [Unknown]
  - Swelling face [Unknown]
  - Overweight [Unknown]
  - Back disorder [Unknown]
  - Erythema [Unknown]
  - Immunodeficiency [Unknown]
  - Mood swings [Unknown]
  - Emotional disorder [Unknown]
  - Dizziness [Unknown]
  - Ear pruritus [Unknown]
  - Rhinorrhoea [Unknown]
  - Eye pruritus [Unknown]
  - Hyperthyroidism [Unknown]
  - Fatigue [Unknown]

NARRATIVE: CASE EVENT DATE: 20200301
